FAERS Safety Report 8480795-0 (Version None)
Quarter: 2012Q2

REPORT INFORMATION
  Report Type: 
  Country: None (occurrence: None)
  Receive Date: 20120622
  Receipt Date: 20120608
  Transmission Date: 20120825
  Serious: Yes (Other)
  Sender: FDA-Public Use
  Company Number: 2012-00622

PATIENT
  Age: 83 Year
  Sex: Female
  Weight: 77.1115 kg

DRUGS (2)
  1. TIMOLOL MALEATE [Concomitant]
  2. LOSARTAN POTASSIUM [Suspect]
     Indication: HYPERTENSION
     Dosage: 50 MG (50 MG,1 IN 1 D),PER ORAL
     Route: 048
     Dates: start: 20120305, end: 20120315

REACTIONS (2)
  - DEAFNESS [None]
  - TINNITUS [None]
